FAERS Safety Report 5546863-8 (Version None)
Quarter: 2007Q4

REPORT INFORMATION
  Report Type: 
  Country: None (occurrence: None)
  Receive Date: 20071203
  Receipt Date: 20071121
  Transmission Date: 20080405
  Serious: Yes (Death)
  Sender: FDA-Public Use
  Company Number: 2007S1012152

PATIENT
  Age: 37 Year
  Sex: Male

DRUGS (4)
  1. AZATHIOPRINE [Suspect]
     Indication: CROHN'S DISEASE
     Dosage: ORAL
     Route: 048
  2. HYDROCORTISONE [Concomitant]
  3. CERTOLIZUMAB (CERTOLIZUMAB) [Suspect]
     Indication: CROHN'S DISEASE
     Dosage: 2 MG;SUBCUTANEOUS
     Route: 058
     Dates: start: 20070501, end: 20070601
  4. INFLIXIMAB (INFLIXIMAB) [Suspect]
     Indication: CROHN'S DISEASE
     Dosage: 5 MG;INTRAVENOUS
     Dates: start: 20020101, end: 20050101

REACTIONS (1)
  - SMALL INTESTINE CARCINOMA METASTATIC [None]
